FAERS Safety Report 24890279 (Version 1)
Quarter: 2025Q1

REPORT INFORMATION
  Report Type: Spontaneous
  Country: US (occurrence: None)
  Receive Date: 20250125
  Receipt Date: 20250125
  Transmission Date: 20250408
  Serious: Yes (Other)
  Sender: FDA-CTU
  Company Number: None

PATIENT
  Age: 29 Year
  Sex: Female
  Weight: 81 kg

DRUGS (3)
  1. QELBREE [Suspect]
     Active Substance: VILOXAZINE HYDROCHLORIDE
     Indication: Attention deficit hyperactivity disorder
     Dosage: 1 CAPSULE DAILY ORAL
     Route: 048
     Dates: start: 20250115, end: 20250125
  2. nuvaring (birth control) [Concomitant]
  3. ATOMOXETINE [Suspect]
     Active Substance: ATOMOXETINE

REACTIONS (9)
  - Gastrointestinal disorder [None]
  - Depression [None]
  - Suicidal ideation [None]
  - Self-injurious ideation [None]
  - Depressed mood [None]
  - Anhedonia [None]
  - Anxiety [None]
  - Malaise [None]
  - Condition aggravated [None]

NARRATIVE: CASE EVENT DATE: 20250118
